FAERS Safety Report 4702378-8 (Version None)
Quarter: 2005Q2

REPORT INFORMATION
  Report Type: 
  Country: None (occurrence: None)
  Receive Date: 20050629
  Receipt Date: 20050615
  Transmission Date: 20051028
  Serious: Yes (Hospitalization)
  Sender: FDA-Public Use
  Company Number: PHHO2005ES09431

PATIENT
  Age: 41 Year
  Sex: Female
  Weight: 39 kg

DRUGS (2)
  1. CYCLOSPORINE [Suspect]
     Indication: LIVER TRANSPLANT
     Route: 048
     Dates: start: 20040918, end: 20050427
  2. TACROLIMUS [Suspect]
     Indication: LIVER TRANSPLANT
     Dosage: UNK, UNK
     Route: 048
     Dates: start: 20050427

REACTIONS (3)
  - COMA [None]
  - DIABETIC KETOACIDOSIS [None]
  - MULTI-ORGAN FAILURE [None]
